FAERS Safety Report 8160582 (Version 2)
Quarter: 2013Q1

REPORT INFORMATION
  Report Type: Spontaneous
  Country: US (occurrence: US)
  Receive Date: 20110928
  Receipt Date: 20130205
  Transmission Date: 20140127
  Serious: Yes (Other)
  Sender: FDA-Public Use
  Company Number: US-JNJFOC-20110908278

PATIENT
  Age: 47 Year
  Sex: Female
  Weight: 56.25 kg

DRUGS (1)
  1. LISTERINE TOTAL CARE ANTICAVITY CINNAMINT [Suspect]
     Indication: DENTAL DISORDER PROPHYLAXIS
     Dosage: HALF CAP, ONCE
     Route: 048

REACTIONS (3)
  - Oral mucosal exfoliation [Recovered/Resolved]
  - Application site burn [Recovered/Resolved]
  - Stomatitis [Recovered/Resolved]
